FAERS Safety Report 10219390 (Version 2)
Quarter: 2014Q2

REPORT INFORMATION
  Report Type: Spontaneous
  Country: JP (occurrence: JP)
  Receive Date: 20140605
  Receipt Date: 20140605
  Transmission Date: 20141212
  Serious: Yes (Other)
  Sender: FDA-Public Use
  Company Number: JP-UCBSA-121820

PATIENT
  Sex: Female

DRUGS (1)
  1. NEUPRO [Suspect]
     Indication: PARKINSON^S DISEASE
     Route: 062

REACTIONS (2)
  - Skin erosion [Not Recovered/Not Resolved]
  - Erythema [Unknown]
